FAERS Safety Report 26129326 (Version 1)
Quarter: 2025Q4

REPORT INFORMATION
  Report Type: Spontaneous
  Country: EU (occurrence: EU)
  Receive Date: 20251208
  Receipt Date: 20251208
  Transmission Date: 20260117
  Serious: Yes (Life-Threatening)
  Sender: ACCORD
  Company Number: None

PATIENT
  Age: 4 Year
  Sex: Female
  Weight: 12 kg

DRUGS (1)
  1. BUSULFAN [Suspect]
     Active Substance: BUSULFAN
     Indication: Neuroblastoma
     Dosage: 1MG/KG EVERY 6 HOURS X 3 DAYS, STRENGTH: 6 MG/ML, CONCENTRATE FOR SOLUTION FOR INFUSION
     Dates: start: 20250724, end: 20250728

REACTIONS (2)
  - Cor pulmonale chronic [Recovering/Resolving]
  - Pulmonary arterial hypertension [Recovered/Resolved]

NARRATIVE: CASE EVENT DATE: 20250913
